FAERS Safety Report 18142779 (Version 1)
Quarter: 2020Q3

REPORT INFORMATION
  Report Type: Spontaneous
  Country: CA (occurrence: CA)
  Receive Date: 20200812
  Receipt Date: 20200812
  Transmission Date: 20201103
  Serious: Yes (Death)
  Sender: FDA-Public Use
  Company Number: CA-TEVA-2020-CA-1812464

PATIENT
  Age: 75 Year
  Sex: Female
  Weight: 96 kg

DRUGS (16)
  1. CANESTEN [Concomitant]
     Active Substance: CLOTRIMAZOLE
  2. ELIQUIS [Concomitant]
     Active Substance: APIXABAN
  3. HALDOL [Suspect]
     Active Substance: HALOPERIDOL
     Indication: AGITATION
     Route: 042
  4. LAX?A?DAY [Concomitant]
     Active Substance: POLYETHYLENE GLYCOL 3350
  5. VITAMIN D [Concomitant]
     Active Substance: VITAMIN D NOS
  6. TEVA?HALOPERIDOL [Suspect]
     Active Substance: HALOPERIDOL
     Route: 048
  7. DEXILANT [Concomitant]
     Active Substance: DEXLANSOPRAZOLE
  8. ZOLOFT [Concomitant]
     Active Substance: SERTRALINE HYDROCHLORIDE
  9. CANDESARTAN. [Concomitant]
     Active Substance: CANDESARTAN
  10. REMERON RD [Concomitant]
     Active Substance: MIRTAZAPINE
  11. ANUSOL NOS [Concomitant]
     Active Substance: BALSAM PERU\BENZYL BENZOATE\BISMUTH HYDROXIDE\BISMUTH SUBGALLATE\HYDROCORTISONE ACETATE\ZINC OXIDE
  12. SPIRIVA [Concomitant]
     Active Substance: TIOTROPIUM BROMIDE MONOHYDRATE
  13. ABILIFY [Concomitant]
     Active Substance: ARIPIPRAZOLE
  14. CLONAZEPAM. [Concomitant]
     Active Substance: CLONAZEPAM
  15. TRAZODONE [Concomitant]
     Active Substance: TRAZODONE HYDROCHLORIDE
  16. TYLENOL [Concomitant]
     Active Substance: ACETAMINOPHEN
     Dosage: ELIXIR

REACTIONS (12)
  - Hyperreflexia [Fatal]
  - Confusional state [Fatal]
  - Hyperleukocytosis [Fatal]
  - Pneumonia aspiration [Fatal]
  - Clonus [Fatal]
  - Muscle rigidity [Fatal]
  - Schizophrenia [Fatal]
  - Condition aggravated [Fatal]
  - Hyperadrenalism [Fatal]
  - Pyrexia [Fatal]
  - Acute respiratory failure [Fatal]
  - Neuroleptic malignant syndrome [Fatal]
